FAERS Safety Report 21403488 (Version 1)
Quarter: 2022Q4

REPORT INFORMATION
  Report Type: Spontaneous
  Country: CN (occurrence: CN)
  Receive Date: 20221003
  Receipt Date: 20221003
  Transmission Date: 20230113
  Serious: Yes (Other)
  Sender: FDA-Public Use
  Company Number: CN-PFIZER INC-202201193893

PATIENT
  Age: 23 Month
  Sex: Male
  Weight: 12.2 kg

DRUGS (1)
  1. CYTARABINE [Suspect]
     Active Substance: CYTARABINE
     Indication: Acute leukaemia
     Dosage: 0.026 G, 2X/DAY
     Route: 041
     Dates: start: 20220922, end: 20220926

REACTIONS (2)
  - Nausea [Recovering/Resolving]
  - Infantile vomiting [Recovering/Resolving]

NARRATIVE: CASE EVENT DATE: 20220922
